FAERS Safety Report 6771681-2 (Version None)
Quarter: 2010Q2

REPORT INFORMATION
  Report Type: 
  Country: None (occurrence: None)
  Receive Date: 20100616
  Receipt Date: 20090518
  Transmission Date: 20101027
  Serious: No
  Sender: FDA-Public Use
  Company Number: US-ASTRAZENECA-2009UW12663

PATIENT
  Age: 57 Year
  Sex: Male
  Weight: 81.6 kg

DRUGS (3)
  1. ATACAND HCT [Suspect]
     Indication: CARDIAC FAILURE CONGESTIVE
     Dosage: 16/12.5 MG DAILY
     Route: 048
     Dates: start: 20090101
  2. ATACAND HCT [Suspect]
     Indication: HYPERTENSION
     Dosage: 16/12.5 MG DAILY
     Route: 048
     Dates: start: 20090101
  3. FUROSEMIDE [Concomitant]

REACTIONS (4)
  - APPETITE DISORDER [None]
  - ASTHENIA [None]
  - FATIGUE [None]
  - WEIGHT DECREASED [None]
